FAERS Safety Report 5287825-8 (Version None)
Quarter: 2007Q2

REPORT INFORMATION
  Report Type: 
  Country: None (occurrence: None)
  Receive Date: 20070403
  Receipt Date: 20070403
  Transmission Date: 20071010
  Serious: Yes (Hospitalization)
  Sender: FDA-Public Use
  Company Number: None

PATIENT
  Age: 67 Year
  Sex: Female
  Weight: 59 kg

DRUGS (5)
  1. PEG-INTRON 80 MICROGRAMS, SCHERING PLOUGH [Suspect]
     Indication: TELANGIECTASIA CONGENITAL
     Dosage: 80 MCG ONCE WEEKLY SQ
     Route: 058
  2. DILANTIN [Concomitant]
  3. PHENOBARBITAL TAB [Concomitant]
  4. FERROUS SULFATE [Concomitant]
  5. ASCORBIC ACID [Concomitant]

REACTIONS (3)
  - ASTHENIA [None]
  - DIZZINESS [None]
  - LOBAR PNEUMONIA [None]
